FAERS Safety Report 24998984 (Version 2)
Quarter: 2025Q3

REPORT INFORMATION
  Report Type: Spontaneous
  Country: US (occurrence: US)
  Receive Date: 20250222
  Receipt Date: 20250823
  Transmission Date: 20251021
  Serious: No
  Sender: SANOFI AVENTIS
  Company Number: US-SA-2025SA047026

PATIENT
  Age: 28 Year
  Sex: Female

DRUGS (2)
  1. DUPIXENT [Suspect]
     Active Substance: DUPILUMAB
     Indication: Dermatitis atopic
     Dosage: 300 MG, QOW
     Dates: start: 202405
  2. DUPIXENT [Suspect]
     Active Substance: DUPILUMAB
     Dosage: DM300P Q2W
     Dates: start: 202405

REACTIONS (4)
  - Rebound atopic dermatitis [Unknown]
  - Pruritus [Unknown]
  - Product dose omission issue [Unknown]
  - Eczema [Unknown]
